FAERS Safety Report 4656228-9 (Version None)
Quarter: 2005Q2

REPORT INFORMATION
  Report Type: 
  Country: None (occurrence: None)
  Receive Date: 20050509
  Receipt Date: 20050307
  Transmission Date: 20051028
  Serious: No
  Sender: FDA-Public Use
  Company Number: US-GLAXOSMITHKLINE-A0548597A

PATIENT
  Age: 52 Year
  Sex: Male

DRUGS (4)
  1. AVANDAMET [Suspect]
     Indication: DIABETES MELLITUS NON-INSULIN-DEPENDENT
     Dosage: 2TAB TWICE PER DAY
     Route: 048
  2. DIOVAN [Concomitant]
  3. PRILOSEC [Concomitant]
  4. LORAZEPAM [Concomitant]

REACTIONS (3)
  - BLOOD GLUCOSE INCREASED [None]
  - GLYCOSYLATED HAEMOGLOBIN INCREASED [None]
  - HAEMOGLOBIN INCREASED [None]
